FAERS Safety Report 5472924-8 (Version None)
Quarter: 2007Q4

REPORT INFORMATION
  Report Type: 
  Country: None (occurrence: None)
  Receive Date: 20071001
  Receipt Date: 20070918
  Transmission Date: 20080405
  Serious: Yes (Hospitalization)
  Sender: FDA-Public Use
  Company Number: B0488847A

PATIENT
  Age: 25 Year
  Sex: Male
  Weight: 60 kg

DRUGS (4)
  1. PAROXETINE [Suspect]
     Indication: BORDERLINE PERSONALITY DISORDER
     Dosage: 400MG PER DAY
     Route: 048
  2. CARBAMAZEPINE [Suspect]
     Indication: BORDERLINE PERSONALITY DISORDER
     Dosage: 20G PER DAY
     Route: 048
  3. LITHIUM [Concomitant]
     Indication: BORDERLINE PERSONALITY DISORDER
  4. RISPERIDONE [Concomitant]
     Indication: BORDERLINE PERSONALITY DISORDER

REACTIONS (17)
  - ALANINE AMINOTRANSFERASE INCREASED [None]
  - ANTICONVULSANT DRUG LEVEL ABOVE THERAPEUTIC [None]
  - BLOOD CREATINE PHOSPHOKINASE INCREASED [None]
  - COMA [None]
  - CONVULSION [None]
  - GAMMA-GLUTAMYLTRANSFERASE INCREASED [None]
  - HYPERNATRAEMIA [None]
  - INTENTIONAL OVERDOSE [None]
  - LEUKOCYTOSIS [None]
  - LOSS OF CONSCIOUSNESS [None]
  - MYDRIASIS [None]
  - PNEUMONIA ASPIRATION [None]
  - SEPSIS [None]
  - SINUS TACHYCARDIA [None]
  - SOMNOLENCE [None]
  - THROMBOCYTOPENIA [None]
  - VOMITING [None]
